FAERS Safety Report 6299640-7 (Version None)
Quarter: 2009Q3

REPORT INFORMATION
  Report Type: 
  Country: None (occurrence: None)
  Receive Date: 20090806
  Receipt Date: 20090729
  Transmission Date: 20100115
  Serious: Yes (Hospitalization)
  Sender: FDA-Public Use
  Company Number: US-SANOFI-SYNTHELABO-A03200903375

PATIENT
  Sex: Female

DRUGS (6)
  1. ASPIRIN [Concomitant]
     Indication: DRUG USE FOR UNKNOWN INDICATION
     Route: 065
  2. DIOVAN [Concomitant]
     Indication: DRUG USE FOR UNKNOWN INDICATION
     Dosage: UNK
     Route: 065
     Dates: end: 20090711
  3. PLAVIX [Suspect]
     Indication: CEREBROVASCULAR ACCIDENT
     Route: 048
     Dates: start: 20020101, end: 20090716
  4. PLAVIX [Suspect]
     Indication: CORONARY ARTERIAL STENT INSERTION
     Route: 048
     Dates: start: 20020101, end: 20090716
  5. PLAVIX [Suspect]
     Dosage: EIGHT TABLETS-LOADING DOSE (TOTAL OF 600 MG)
     Route: 048
     Dates: start: 20090501, end: 20090501
  6. PLAVIX [Suspect]
     Dosage: EIGHT TABLETS-LOADING DOSE (TOTAL OF 600 MG)
     Route: 048
     Dates: start: 20090501, end: 20090501

REACTIONS (13)
  - CHEST PAIN [None]
  - CHOKING SENSATION [None]
  - CORONARY ARTERY OCCLUSION [None]
  - DISTURBANCE IN ATTENTION [None]
  - DIZZINESS [None]
  - HEADACHE [None]
  - HYPOAESTHESIA [None]
  - MUSCULAR WEAKNESS [None]
  - NAUSEA [None]
  - OVERDOSE [None]
  - PAIN IN EXTREMITY [None]
  - ULCER [None]
  - VOMITING [None]
